FAERS Safety Report 6403613-0 (Version None)
Quarter: 2009Q4

REPORT INFORMATION
  Report Type: 
  Country: None (occurrence: None)
  Receive Date: 20091016
  Receipt Date: 20091008
  Transmission Date: 20100525
  Serious: Yes (Other)
  Sender: FDA-Public Use
  Company Number: US-B.I. PHARMACEUTICALS,INC./RIDGEFIELD-2009-BP-10233BP

PATIENT
  Sex: Male

DRUGS (11)
  1. SPIRIVA [Suspect]
     Indication: CHRONIC OBSTRUCTIVE PULMONARY DISEASE
     Dosage: 18 MCG
     Route: 055
     Dates: start: 20090801, end: 20090901
  2. ADVAIR DISKUS 100/50 [Concomitant]
     Indication: CHRONIC OBSTRUCTIVE PULMONARY DISEASE
     Route: 055
     Dates: start: 20090801
  3. NEXIUM [Concomitant]
     Indication: GASTROOESOPHAGEAL REFLUX DISEASE
     Dosage: 40 MG
     Route: 048
  4. KEPPRA [Concomitant]
     Indication: ANXIETY
     Dosage: 250 MG
     Route: 048
  5. KEPPRA [Concomitant]
     Indication: DEPRESSION
  6. RITALIN [Concomitant]
     Indication: ANXIETY
     Dosage: 10 MG
     Route: 048
  7. RITALIN [Concomitant]
     Indication: DEPRESSION
  8. DETROL LA [Concomitant]
     Indication: POLLAKIURIA
     Dosage: 4 MG
     Route: 048
  9. MECLIZINE [Concomitant]
     Indication: VERTIGO
     Dosage: 25 MG
     Route: 048
  10. PLAVIX [Concomitant]
     Dosage: 75 MG
     Route: 048
  11. PROAIR HFA [Concomitant]

REACTIONS (5)
  - CHEST PAIN [None]
  - EYE IRRITATION [None]
  - EYE PAIN [None]
  - HEART RATE INCREASED [None]
  - OCULAR HYPERAEMIA [None]
